FAERS Safety Report 11036913 (Version 1)
Quarter: 2015Q2

REPORT INFORMATION
  Report Type: Spontaneous
  Country: US (occurrence: None)
  Receive Date: 20150415
  Receipt Date: 20150415
  Transmission Date: 20150821
  Serious: Yes (Other)
  Sender: FDA-Public Use
  Company Number: None

PATIENT
  Age: 83 Year
  Sex: Female

DRUGS (16)
  1. OMEPRAZOLE (PRILOSEC) [Concomitant]
  2. ATENOLOL (TENORMIN) [Concomitant]
  3. SODIUM FLUORIDE (PHOS-FLUR) [Concomitant]
  4. IPRATROPIUM (ATROVENT) [Concomitant]
  5. TRACLEER [Suspect]
     Active Substance: BOSENTAN\BOSENTAN MONOHYDRATE
     Indication: CONNECTIVE TISSUE DISORDER
     Route: 048
     Dates: start: 20150101, end: 20150409
  6. SIMVASTATIN (ZOCOR) [Concomitant]
  7. LEVOTHYROXINE (LEVOTHROID/SYNTHROID) [Concomitant]
  8. PSYLLIUM (METAMUCIL) [Concomitant]
  9. FLUTICASONE (FLONASE) [Concomitant]
  10. ASPIRIN (ASPIR-LOW) [Concomitant]
  11. TRACLEER [Suspect]
     Active Substance: BOSENTAN\BOSENTAN MONOHYDRATE
     Indication: HEART DISEASE CONGENITAL
     Route: 048
     Dates: start: 20150101, end: 20150409
  12. FUROSEMIDE (LASIX) [Concomitant]
  13. TBEC DR [Concomitant]
  14. ACETAMINOPHEN (PAIN RELIEF) [Concomitant]
  15. TRACLEER [Suspect]
     Active Substance: BOSENTAN\BOSENTAN MONOHYDRATE
     Indication: PULMONARY ARTERIAL HYPERTENSION
     Route: 048
     Dates: start: 20150101, end: 20150409
  16. KLOR-CON [Concomitant]
     Active Substance: POTASSIUM CHLORIDE

REACTIONS (1)
  - Liver function test abnormal [None]

NARRATIVE: CASE EVENT DATE: 20150404
